FAERS Safety Report 7551170-8 (Version None)
Quarter: 2011Q2

REPORT INFORMATION
  Report Type: 
  Country: None (occurrence: None)
  Receive Date: 20110616
  Receipt Date: 20110602
  Transmission Date: 20111010
  Serious: Yes (Hospitalization, Other)
  Sender: FDA-Public Use
  Company Number: PHHY2011US31975

PATIENT
  Sex: Female

DRUGS (8)
  1. FEMARA [Concomitant]
  2. SIMVASTATIN [Concomitant]
  3. RECLAST [Suspect]
     Dosage: 5 MG, UNK
     Route: 042
     Dates: start: 20090101
  4. LISINOPRIL [Concomitant]
  5. CENTRUM SILVER [Concomitant]
  6. ASPIRIN [Concomitant]
  7. ZOCOR [Concomitant]
  8. TOPRAL [Concomitant]

REACTIONS (7)
  - NEPHROLITHIASIS [None]
  - FEMORAL ARTERIAL STENOSIS [None]
  - PAIN [None]
  - LOSS OF CONSCIOUSNESS [None]
  - INTERVERTEBRAL DISC PROTRUSION [None]
  - SPINAL COLUMN STENOSIS [None]
  - BACK DISORDER [None]
